FAERS Safety Report 6358007-3 (Version None)
Quarter: 2009Q3

REPORT INFORMATION
  Report Type: 
  Country: None (occurrence: None)
  Receive Date: 20090911
  Receipt Date: 20090902
  Transmission Date: 20100115
  Serious: Yes (Hospitalization, Other)
  Sender: FDA-Public Use
  Company Number: GXKR2009JP08791

PATIENT
  Age: 37 Year
  Sex: Male
  Weight: 61.3 kg

DRUGS (8)
  1. PROPOFOL [Suspect]
     Indication: INDUCTION OF ANAESTHESIA
  2. ROCURONIUM BROMIDE [Suspect]
     Indication: MUSCLE RELAXANT THERAPY
  3. VECURONIUM BROMIDE [Suspect]
     Indication: ANAESTHESIA
  4. SEVOFLURANE [Suspect]
     Indication: MAINTENANCE OF ANAESTHESIA
  5. DIAZEPAM [Concomitant]
  6. ATROPINE SULFATE (ATROPINE SULFATE) SOLUTION FOR INJECTION [Concomitant]
  7. FENTANYL CITRATE [Concomitant]
  8. OXYGEN (OXYGEN) [Concomitant]

REACTIONS (3)
  - BLOOD CREATINE INCREASED [None]
  - REFUSAL OF TREATMENT BY PATIENT [None]
  - RHABDOMYOLYSIS [None]
